FAERS Safety Report 7680321-X (Version None)
Quarter: 2011Q3

REPORT INFORMATION
  Report Type: 
  Country: None (occurrence: None)
  Receive Date: 20110812
  Receipt Date: 20110808
  Transmission Date: 20111222
  Serious: Yes (Disabling)
  Sender: FDA-Public Use
  Company Number: US-GLAXOSMITHKLINE-A0938200A

PATIENT
  Age: 76 Year
  Sex: Male

DRUGS (3)
  1. PREDNISONE [Concomitant]
  2. ADVAIR DISKUS 100/50 [Suspect]
     Indication: CHRONIC OBSTRUCTIVE PULMONARY DISEASE
     Dosage: 1PUFF TWICE PER DAY
     Route: 055
     Dates: start: 20060701
  3. PROAIR HFA [Concomitant]

REACTIONS (3)
  - PRODUCT QUALITY ISSUE [None]
  - CHRONIC OBSTRUCTIVE PULMONARY DISEASE [None]
  - DRUG ADMINISTRATION ERROR [None]
